FAERS Safety Report 8779659 (Version 2)
Quarter: 2012Q4

REPORT INFORMATION
  Report Type: 
  Country: HK (occurrence: HK)
  Receive Date: 20120911
  Receipt Date: 20120913
  Transmission Date: 20130627
  Serious: Yes (Other)
  Sender: FDA-Public Use
  Company Number: HK-PFIZER INC-2012221871

PATIENT
  Age: 61 Year
  Sex: Female

DRUGS (2)
  1. NORVASC [Suspect]
     Dosage: 2.5 mg, 1x/day
     Dates: end: 20120908
  2. NORVASC [Suspect]
     Dosage: 2.5 mg, 1x/day

REACTIONS (6)
  - Angina pectoris [Unknown]
  - Abdominal pain upper [Unknown]
  - Renal pain [Unknown]
  - Hepatic pain [Unknown]
  - Oral discomfort [Unknown]
  - Oropharyngeal pain [Unknown]
